FAERS Safety Report 7903240-X (Version None)
Quarter: 2011Q4

REPORT INFORMATION
  Report Type: 
  Country: None (occurrence: None)
  Receive Date: 20111109
  Receipt Date: 20111031
  Transmission Date: 20120403
  Serious: Yes (Other)
  Sender: FDA-Public Use
  Company Number: JP-JNJFOC-20111012034

PATIENT
  Sex: Male
  Weight: 71 kg

DRUGS (13)
  1. PREDNISOLONE [Suspect]
     Indication: PRODUCT USED FOR UNKNOWN INDICATION
     Route: 048
  2. MOBIC [Concomitant]
     Route: 048
  3. METHOTREXATE [Suspect]
     Indication: PRODUCT USED FOR UNKNOWN INDICATION
     Route: 048
  4. PROGRAF [Suspect]
     Route: 048
     Dates: start: 20110309
  5. LOXONIN [Concomitant]
     Route: 048
  6. PROGRAF [Suspect]
     Indication: PRODUCT USED FOR UNKNOWN INDICATION
     Route: 048
     Dates: start: 20110208, end: 20110308
  7. REMICADE [Suspect]
     Route: 042
  8. ISONIAZID [Concomitant]
     Indication: ANTIBIOTIC PROPHYLAXIS
     Route: 048
     Dates: start: 20110517, end: 20110926
  9. RABEPRAZOLE SODIUM [Concomitant]
     Route: 048
  10. REMICADE [Suspect]
     Indication: RHEUMATOID ARTHRITIS
     Dosage: TOTAL NUMBER OF INFUSIONS WAS 3
     Route: 042
     Dates: start: 20110726
  11. REMICADE [Suspect]
     Route: 042
     Dates: start: 20110614
  12. RHEUMATREX [Suspect]
     Indication: RHEUMATOID ARTHRITIS
     Route: 048
  13. CELECOXIB [Concomitant]
     Route: 048

REACTIONS (1)
  - PULMONARY TUBERCULOSIS [None]
